FAERS Safety Report 16014241 (Version 1)
Quarter: 2019Q1

REPORT INFORMATION
  Report Type: Spontaneous
  Country: None (occurrence: US)
  Receive Date: 20190227
  Receipt Date: 20190227
  Transmission Date: 20190418
  Serious: Yes (Life-Threatening, Hospitalization, Disabling)
  Sender: FDA-Public Use
  Company Number: US-MEDAC PHARMA, INC.-2063289

PATIENT
  Age: 41 Year
  Sex: Female
  Weight: 61.69 kg

DRUGS (2)
  1. RASUVO [Suspect]
     Active Substance: METHOTREXATE SODIUM
     Indication: RHEUMATOID ARTHRITIS
     Route: 051
     Dates: start: 2015, end: 201609
  2. XELJANZ XR [Suspect]
     Active Substance: TOFACITINIB CITRATE
     Route: 048
     Dates: start: 2016

REACTIONS (1)
  - Pulmonary fibrosis [Recovered/Resolved with Sequelae]

NARRATIVE: CASE EVENT DATE: 20160922
